FAERS Safety Report 9711373 (Version 1)
Quarter: 2013Q4

REPORT INFORMATION
  Report Type: Spontaneous
  Country: US (occurrence: US)
  Receive Date: 20131126
  Receipt Date: 20131126
  Transmission Date: 20140711
  Serious: No
  Sender: FDA-Public Use
  Company Number: US-BRISTOL-MYERS SQUIBB COMPANY-19220177

PATIENT
  Age: 69 Year
  Sex: Female
  Weight: 103.85 kg

DRUGS (3)
  1. BYETTA [Suspect]
     Indication: TYPE 2 DIABETES MELLITUS
     Dosage: INCREASED TO THE 10MCG BID ?10MCG SQ INJECTION ONCE WEEKLY
     Route: 058
     Dates: start: 2005
  2. GLIPIZIDE [Concomitant]
  3. LEVOTHYROXINE [Concomitant]

REACTIONS (3)
  - Blood glucose decreased [Unknown]
  - Weight decreased [Unknown]
  - Nausea [Unknown]
